FAERS Safety Report 5325004-6 (Version None)
Quarter: 2007Q2

REPORT INFORMATION
  Report Type: 
  Country: None (occurrence: None)
  Receive Date: 20070515
  Receipt Date: 20070502
  Transmission Date: 20071010
  Serious: Yes (Other)
  Sender: FDA-Public Use
  Company Number: US-AMGEN-STX211692

PATIENT
  Sex: Female

DRUGS (2)
  1. ENBREL [Suspect]
     Indication: RHEUMATOID ARTHRITIS
     Route: 058
     Dates: start: 20040607
  2. SINGULAIR [Concomitant]
     Route: 065

REACTIONS (5)
  - DIVERTICULITIS [None]
  - INJECTION SITE PAIN [None]
  - IRRITABLE BOWEL SYNDROME [None]
  - SINUSITIS [None]
  - UPPER RESPIRATORY TRACT INFECTION [None]
